FAERS Safety Report 6121355-6 (Version None)
Quarter: 2009Q1

REPORT INFORMATION
  Report Type: 
  Country: None (occurrence: None)
  Receive Date: 20090313
  Receipt Date: 20090313
  Transmission Date: 20090719
  Serious: Yes (Death, Other)
  Sender: FDA-Public Use
  Company Number: None

PATIENT
  Age: 55 Year
  Sex: Female
  Weight: 58.9676 kg

DRUGS (2)
  1. SEROQUEL [Suspect]
     Indication: DEPRESSION
     Dosage: UNKNOWN
     Dates: start: 20090130, end: 20090306
  2. LEXAPRO [Suspect]
     Dosage: UNKNOWN

REACTIONS (1)
  - COMPLETED SUICIDE [None]
